FAERS Safety Report 6661896-6 (Version None)
Quarter: 2010Q1

REPORT INFORMATION
  Report Type: 
  Country: None (occurrence: None)
  Receive Date: 20100331
  Receipt Date: 20090921
  Transmission Date: 20100710
  Serious: Yes (Other)
  Sender: FDA-Public Use
  Company Number: US-BRISTOL-MYERS SQUIBB COMPANY-14787691

PATIENT
  Sex: Male

DRUGS (5)
  1. ERBITUX [Suspect]
     Indication: COLORECTAL CANCER
     Dosage: 1 DOSAGE FORM = 5-10 CC
     Dates: start: 20090914
  2. BENADRYL [Concomitant]
     Indication: PREMEDICATION
  3. H1 ANTAGONIST [Concomitant]
     Indication: PREMEDICATION
  4. H2 ANTAGONIST [Concomitant]
     Indication: PREMEDICATION
  5. TYLENOL-500 [Concomitant]
     Indication: PREMEDICATION

REACTIONS (1)
  - INFUSION RELATED REACTION [None]
